FAERS Safety Report 7794433-3 (Version None)
Quarter: 2011Q4

REPORT INFORMATION
  Report Type: 
  Country: None (occurrence: None)
  Receive Date: 20111004
  Receipt Date: 20111004
  Transmission Date: 20120403
  Serious: Yes (Other)
  Sender: FDA-Public Use
  Company Number: None

PATIENT
  Age: 43 Year
  Sex: Female
  Weight: 68.038 kg

DRUGS (1)
  1. PRAVASTATIN [Suspect]
     Indication: BLOOD CHOLESTEROL INCREASED
     Dosage: 1 TABLET
     Route: 048
     Dates: start: 20110601, end: 20110902

REACTIONS (6)
  - CONFUSIONAL STATE [None]
  - ARTHRALGIA [None]
  - RENAL FAILURE [None]
  - HEADACHE [None]
  - MYALGIA [None]
  - FATIGUE [None]
